FAERS Safety Report 10500967 (Version 1)
Quarter: 2014Q4

REPORT INFORMATION
  Report Type: Spontaneous
  Country: US (occurrence: None)
  Receive Date: 20141006
  Receipt Date: 20141006
  Transmission Date: 20150528
  Serious: Yes (Other)
  Sender: FDA-Public Use
  Company Number: None

PATIENT
  Age: 77 Year
  Sex: Male
  Weight: 97.52 kg

DRUGS (2)
  1. WARFARIN [Suspect]
     Active Substance: WARFARIN
     Indication: PULMONARY EMBOLISM
     Dosage: 5 MG (8 PILLS/WEEK), 2 PILLS M/1 PILL A, ORAL
     Route: 048
  2. WARFARIN [Suspect]
     Active Substance: WARFARIN
     Indication: DEEP VEIN THROMBOSIS
     Dosage: 5 MG (8 PILLS/WEEK), 2 PILLS M/1 PILL A, ORAL
     Route: 048

REACTIONS (4)
  - Headache [None]
  - Drug dose omission [None]
  - International normalised ratio decreased [None]
  - Diet noncompliance [None]

NARRATIVE: CASE EVENT DATE: 20141001
